FAERS Safety Report 5814341-4 (Version None)
Quarter: 2008Q3

REPORT INFORMATION
  Report Type: 
  Country: None (occurrence: None)
  Receive Date: 20080715
  Receipt Date: 20080707
  Transmission Date: 20090109
  Serious: Yes (Death, Hospitalization)
  Sender: FDA-Public Use
  Company Number: 2008AL007965

PATIENT
  Age: 88 Year
  Sex: Female

DRUGS (5)
  1. DIGOXIN [Suspect]
     Indication: CARDIAC DISORDER
     Dosage: PO
     Route: 048
     Dates: start: 20071101, end: 20080301
  2. METOPROLOL TARTRATE [Concomitant]
  3. NITROFURANTOIN [Concomitant]
  4. LYRICA [Concomitant]
  5. FUROSEMIDE [Concomitant]

REACTIONS (1)
  - OEDEMA PERIPHERAL [None]
